FAERS Safety Report 9100468 (Version 3)
Quarter: 2013Q3

REPORT INFORMATION
  Report Type: Report from Study
  Country: US (occurrence: US)
  Receive Date: 20130215
  Receipt Date: 20130813
  Transmission Date: 20140515
  Serious: Yes (Other)
  Sender: FDA-Public Use
  Company Number: PHEH2013US003588

PATIENT
  Age: 40 Year
  Sex: Female

DRUGS (2)
  1. GILENYA [Suspect]
     Indication: MULTIPLE SCLEROSIS
     Dosage: 0.5 MG, QD
     Route: 048
  2. PRISTIQ [Concomitant]
     Dosage: UNK UKN, UNK

REACTIONS (3)
  - Optic neuritis [Unknown]
  - Vision blurred [Unknown]
  - Visual acuity reduced [Unknown]
